FAERS Safety Report 10610728 (Version 1)
Quarter: 2014Q4

REPORT INFORMATION
  Report Type: Spontaneous
  Country: US (occurrence: None)
  Receive Date: 20141124
  Receipt Date: 20141124
  Transmission Date: 20150529
  Serious: Yes (Hospitalization, Other)
  Sender: FDA-Public Use
  Company Number: 2014-US-015125

PATIENT
  Age: 44 Year
  Sex: Female

DRUGS (1)
  1. XYREM [Suspect]
     Active Substance: SODIUM OXYBATE
     Indication: INSOMNIA
     Route: 048
     Dates: start: 200703

REACTIONS (9)
  - Pneumonia [None]
  - Aspiration [None]
  - Laryngeal injury [None]
  - Off label use [None]
  - Pulmonary haemorrhage [None]
  - Endometriosis [None]
  - Haemorrhagic cyst [None]
  - Condition aggravated [None]
  - Aphonia [None]

NARRATIVE: CASE EVENT DATE: 20131212
